FAERS Safety Report 5611310-4 (Version None)
Quarter: 2008Q1

REPORT INFORMATION
  Report Type: 
  Country: None (occurrence: None)
  Receive Date: 20080201
  Receipt Date: 20080118
  Transmission Date: 20080703
  Serious: Yes (Hospitalization)
  Sender: FDA-Public Use
  Company Number: GB-BAUSCH-2008BL000224

PATIENT
  Age: 49 Year
  Sex: Male

DRUGS (4)
  1. PREDNISOLONE [Suspect]
     Indication: DRUG USE FOR UNKNOWN INDICATION
  2. IBUPROFEN [Suspect]
     Indication: DRUG USE FOR UNKNOWN INDICATION
  3. PARACETAMOL [Suspect]
     Indication: DRUG USE FOR UNKNOWN INDICATION
  4. SEROXAT ^SMITHKLINE BEECHAM^ [Suspect]
     Indication: DRUG USE FOR UNKNOWN INDICATION
     Dates: start: 20020429

REACTIONS (10)
  - ABNORMAL DREAMS [None]
  - AGGRESSION [None]
  - ANXIETY [None]
  - DISTURBANCE IN ATTENTION [None]
  - DRUG WITHDRAWAL SYNDROME [None]
  - EMOTIONAL DISORDER [None]
  - IRRITABILITY [None]
  - NIGHTMARE [None]
  - OVERDOSE [None]
  - SUICIDE ATTEMPT [None]
